FAERS Safety Report 8990854 (Version 1)
Quarter: 2012Q4

REPORT INFORMATION
  Report Type: Spontaneous
  Country: US (occurrence: None)
  Receive Date: 20121226
  Receipt Date: 20121226
  Transmission Date: 20130627
  Serious: Yes (Other)
  Sender: FDA-Public Use
  Company Number: None

PATIENT
  Age: 47 Year
  Sex: Female
  Weight: 63.5 kg

DRUGS (1)
  1. NITROFURANTOIN [Suspect]
     Indication: UTI
     Dosage: 100mg 2x a day po
     Route: 048
     Dates: start: 20121201, end: 20121222

REACTIONS (5)
  - Nausea [None]
  - Migraine [None]
  - Meningitis [None]
  - Fatigue [None]
  - Vomiting [None]
